FAERS Safety Report 25138939 (Version 1)
Quarter: 2025Q1

REPORT INFORMATION
  Report Type: Spontaneous
  Country: HR (occurrence: HR)
  Receive Date: 20250331
  Receipt Date: 20250331
  Transmission Date: 20250409
  Serious: Yes (Hospitalization, Other)
  Sender: ROCHE
  Company Number: HR-ROCHE-10000235657

PATIENT
  Age: 61 Year
  Sex: Male

DRUGS (2)
  1. COLUMVI [Suspect]
     Active Substance: GLOFITAMAB-GXBM
     Indication: Diffuse large B-cell lymphoma
     Route: 065
  2. OBINUTUZUMAB [Suspect]
     Active Substance: OBINUTUZUMAB
     Indication: Diffuse large B-cell lymphoma
     Route: 065

REACTIONS (7)
  - Pyrexia [Unknown]
  - COVID-19 [Unknown]
  - Confusional state [Unknown]
  - Dyspnoea [Unknown]
  - Dysgraphia [Unknown]
  - Hypogammaglobulinaemia [Unknown]
  - Respiratory failure [Unknown]
